FAERS Safety Report 7631977-9 (Version None)
Quarter: 2011Q3

REPORT INFORMATION
  Report Type: 
  Country: None (occurrence: None)
  Receive Date: 20110725
  Receipt Date: 20110518
  Transmission Date: 20111222
  Serious: No
  Sender: FDA-Public Use
  Company Number: US-BRISTOL-MYERS SQUIBB COMPANY-15754971

PATIENT
  Age: 74 Year
  Sex: Male

DRUGS (1)
  1. COUMADIN [Suspect]
     Dosage: 50TABS,10MG 5 DAYS A WK AND 7 1/2 ON TWO DAYS OUT OF THE WKS

REACTIONS (1)
  - INTERNATIONAL NORMALISED RATIO DECREASED [None]
